FAERS Safety Report 26048622 (Version 1)
Quarter: 2025Q4

REPORT INFORMATION
  Report Type: Report from Study
  Country: CN (occurrence: CN)
  Receive Date: 20251114
  Receipt Date: 20251114
  Transmission Date: 20260118
  Serious: Yes (Death)
  Sender: ABBVIE
  Company Number: CN-ABBVIE-6547277

PATIENT
  Age: 63 Year
  Sex: Male

DRUGS (4)
  1. VENETOCLAX [Suspect]
     Active Substance: VENETOCLAX
     Indication: Myelodysplastic syndrome
     Dosage: DAY 1, DOSE RAMP UP
     Route: 048
  2. VENETOCLAX [Suspect]
     Active Substance: VENETOCLAX
     Indication: Myelodysplastic syndrome
     Dosage: DAY 3-28
     Route: 048
  3. VENETOCLAX [Suspect]
     Active Substance: VENETOCLAX
     Indication: Myelodysplastic syndrome
     Dosage: DAY 2, DOSE RAMP UP
     Route: 048
  4. GILTERITINIB [Suspect]
     Active Substance: GILTERITINIB
     Indication: Myelodysplastic syndrome
     Dosage: ONCE DAILY FROM DAY1 AT DOSES OF 80 OR 120 MG FOR DOSE ESCALATION
     Route: 048

REACTIONS (4)
  - Febrile neutropenia [Fatal]
  - Bacteraemia [Fatal]
  - Pneumonia [Fatal]
  - Off label use [Unknown]
